FAERS Safety Report 6406998-4 (Version None)
Quarter: 2009Q4

REPORT INFORMATION
  Report Type: 
  Country: None (occurrence: None)
  Receive Date: 20091020
  Receipt Date: 20091006
  Transmission Date: 20100525
  Serious: Yes (Other)
  Sender: FDA-Public Use
  Company Number: PHHY2009BR43885

PATIENT
  Sex: Female
  Weight: 80 kg

DRUGS (8)
  1. TRILEPTAL [Suspect]
     Dosage: 300 MG, UNK
     Route: 048
     Dates: start: 20000101
  2. VENLAFAXINE HYDROCHLORIDE [Concomitant]
     Indication: DEPRESSION
     Dosage: 1 DF, DAILY
     Route: 048
     Dates: start: 20090820
  3. AMLODIPINE BESYLATE [Concomitant]
     Indication: BLOOD PRESSURE
     Dosage: 0.25 DF, QD
     Route: 048
  4. ANGIPRESS [Concomitant]
     Indication: BLOOD PRESSURE
     Dosage: 1 DF, DAILY
     Route: 048
  5. PREVENCOR [Concomitant]
     Indication: BLOOD CHOLESTEROL
     Dosage: ONCE AFTER DINNER
     Route: 048
  6. BETAHISTINE HYDROCHLORIDE [Concomitant]
     Indication: DIZZINESS
     Dosage: ONCE DAILY
     Route: 048
  7. BETAHISTINE HYDROCHLORIDE [Concomitant]
     Indication: TINNITUS
  8. BETAHISTINE HYDROCHLORIDE [Concomitant]
     Indication: LABYRINTHITIS

REACTIONS (9)
  - BLOOD PRESSURE INCREASED [None]
  - CENTRAL NERVOUS SYSTEM LESION [None]
  - CONFUSIONAL STATE [None]
  - GASTRITIS [None]
  - HAEMORRHOIDS [None]
  - INTESTINAL FUNCTIONAL DISORDER [None]
  - MACULAR DEGENERATION [None]
  - MEMORY IMPAIRMENT [None]
  - METAMORPHOPSIA [None]
